FAERS Safety Report 19996462 (Version 1)
Quarter: 2021Q4

REPORT INFORMATION
  Report Type: Spontaneous
  Country: US (occurrence: US)
  Receive Date: 20211026
  Receipt Date: 20211026
  Transmission Date: 20220303
  Serious: No
  Sender: FDA-Public Use
  Company Number: US-SANOFI-00818561

PATIENT
  Age: 53 Year
  Sex: Female

DRUGS (2)
  1. XYZAL ALLERGY 24HR [Suspect]
     Active Substance: LEVOCETIRIZINE DIHYDROCHLORIDE
     Indication: Hypersensitivity
     Dosage: 1 DF, QD
  2. XYZAL ALLERGY 24HR [Suspect]
     Active Substance: LEVOCETIRIZINE DIHYDROCHLORIDE
     Indication: Swelling
     Dosage: UNK

REACTIONS (4)
  - Burning sensation [Recovering/Resolving]
  - Swollen tongue [Recovering/Resolving]
  - Tongue disorder [Unknown]
  - Ageusia [Recovering/Resolving]
